FAERS Safety Report 6085313-2 (Version None)
Quarter: 2009Q1

REPORT INFORMATION
  Report Type: 
  Country: None (occurrence: None)
  Receive Date: 20090220
  Receipt Date: 20090130
  Transmission Date: 20090719
  Serious: Yes (Death)
  Sender: FDA-Public Use
  Company Number: US-TYCO HEALTHCARE/MALLINCKRODT-T200900243

PATIENT
  Age: 20 Year
  Sex: Male

DRUGS (4)
  1. ACETAMINOPHEN AND HYDROCODONE BITARTRATE [Suspect]
  2. MORPHINE [Suspect]
  3. ASPIRIN [Suspect]
  4. ETHANOL [Suspect]

REACTIONS (1)
  - COMPLETED SUICIDE [None]
